FAERS Safety Report 9125424 (Version 2)
Quarter: 2013Q1

REPORT INFORMATION
  Report Type: Report from Study
  Country: US (occurrence: US)
  Receive Date: 20130227
  Receipt Date: 20130228
  Transmission Date: 20140127
  Serious: Yes (Other)
  Sender: FDA-Public Use
  Company Number: US-GLAXOSMITHKLINE-A1013693A

PATIENT
  Sex: Male
  Weight: 122.2 kg

DRUGS (13)
  1. LAPATINIB [Suspect]
     Indication: BREAST CANCER
     Dosage: 750MG PER DAY
     Route: 048
     Dates: start: 20101004
  2. TRASTUZUMAB [Suspect]
     Indication: BREAST CANCER
     Dosage: 2MGK WEEKLY
     Route: 042
     Dates: start: 20101004
  3. CARBOPLATIN [Suspect]
     Indication: BREAST CANCER
     Route: 042
     Dates: start: 20101004
  4. DOCETAXEL [Suspect]
     Indication: BREAST CANCER
     Dosage: 75MGM2 EVERY 3 WEEKS
     Route: 042
     Dates: start: 20101004
  5. METFORMIN [Concomitant]
  6. VOLTAREN [Concomitant]
     Dates: start: 20100614
  7. CIALIS [Concomitant]
     Dates: start: 20100803
  8. NAPROXIN [Concomitant]
  9. OXYCODONE [Concomitant]
  10. VITAMIN B6 [Concomitant]
     Dates: start: 20101206
  11. GABAPENTIN [Concomitant]
     Dates: start: 20101206
  12. VIAGRA [Concomitant]
     Dates: start: 20110321
  13. NORTRIPTYLINE [Concomitant]
     Dates: start: 20110928

REACTIONS (1)
  - Fracture [Unknown]
